FAERS Safety Report 20912143 (Version 9)
Quarter: 2024Q1

REPORT INFORMATION
  Report Type: Report from Study
  Country: IN (occurrence: IN)
  Receive Date: 20220603
  Receipt Date: 20240331
  Transmission Date: 20240410
  Serious: Yes (Other)
  Sender: FDA-Public Use
  Company Number: IN-NOVARTISPH-PHHY2018IN073298

PATIENT
  Age: 62 Year
  Sex: Male
  Weight: 68 kg

DRUGS (11)
  1. TASIGNA [Suspect]
     Active Substance: NILOTINIB
     Indication: Chronic myeloid leukaemia
     Dosage: 400 MG, QD
     Route: 048
     Dates: start: 20160711, end: 20160811
  2. TASIGNA [Suspect]
     Active Substance: NILOTINIB
     Indication: Philadelphia chromosome positive
     Dosage: 300 MG, QD
     Route: 048
     Dates: start: 20160711
  3. TASIGNA [Suspect]
     Active Substance: NILOTINIB
     Dosage: 400 MG, BID
     Route: 048
     Dates: start: 20160811, end: 20180626
  4. TASIGNA [Suspect]
     Active Substance: NILOTINIB
     Dosage: 300 MG, BID
     Route: 048
     Dates: start: 20180627, end: 20181211
  5. TASIGNA [Suspect]
     Active Substance: NILOTINIB
     Dosage: 300 MG BD AND 300 MG OD ON ALTERNATE DAY
     Route: 048
     Dates: start: 20181212
  6. TASIGNA [Suspect]
     Active Substance: NILOTINIB
     Dosage: 300 MG, BID
     Route: 065
     Dates: start: 20210227, end: 20211116
  7. TASIGNA [Suspect]
     Active Substance: NILOTINIB
     Dosage: 300 MG,QD
     Route: 065
     Dates: start: 20211117
  8. TASIGNA [Suspect]
     Active Substance: NILOTINIB
     Dosage: 300 MG, QD
     Route: 065
     Dates: start: 20220504
  9. TASIGNA [Suspect]
     Active Substance: NILOTINIB
     Dosage: 300 MG, QD
     Route: 065
     Dates: start: 20220803
  10. TASIGNA [Suspect]
     Active Substance: NILOTINIB
     Dosage: 300 MG, QD
     Route: 048
     Dates: start: 20230208
  11. TASIGNA [Suspect]
     Active Substance: NILOTINIB
     Dosage: 300 MG, BID
     Route: 048
     Dates: start: 20230808

REACTIONS (31)
  - Prostatic disorder [Recovered/Resolved]
  - Hypothyroidism [Unknown]
  - Leukopenia [Unknown]
  - Pneumonitis [Recovered/Resolved]
  - Affective disorder [Recovering/Resolving]
  - Pollakiuria [Recovered/Resolved]
  - Chest pain [Not Recovered/Not Resolved]
  - Pyrexia [Recovering/Resolving]
  - Headache [Recovering/Resolving]
  - Cough [Recovered/Resolved]
  - Pruritus [Recovered/Resolved]
  - Dizziness [Recovered/Resolved]
  - Pyrexia [Recovered/Resolved]
  - Cough [Recovered/Resolved]
  - Cough [Recovered/Resolved]
  - Nasopharyngitis [Recovered/Resolved]
  - Nasopharyngitis [Recovered/Resolved]
  - Asthenia [Unknown]
  - Oedema peripheral [Unknown]
  - Platelet count decreased [Unknown]
  - Skin tightness [Unknown]
  - Pruritus [Unknown]
  - Weight abnormal [Unknown]
  - Skin hyperpigmentation [Unknown]
  - Blood pressure increased [Unknown]
  - Heart rate increased [Unknown]
  - Skin ulcer [Recovered/Resolved]
  - Peripheral arterial occlusive disease [Unknown]
  - Balance disorder [Unknown]
  - Blood glucose abnormal [Unknown]
  - Off label use [Unknown]

NARRATIVE: CASE EVENT DATE: 20170125
